FAERS Safety Report 7376454-8 (Version None)
Quarter: 2011Q1

REPORT INFORMATION
  Report Type: 
  Country: None (occurrence: None)
  Receive Date: 20110325
  Receipt Date: 20110302
  Transmission Date: 20110831
  Serious: No
  Sender: FDA-Public Use
  Company Number: US-B.I. PHARMACEUTICALS,INC./RIDGEFIELD-2011-BP-06081BP

PATIENT
  Age: 75 Year
  Sex: Male

DRUGS (2)
  1. PRADAXA [Suspect]
     Indication: ATRIAL FIBRILLATION
     Dosage: 300 MG
     Route: 048
     Dates: start: 20110105
  2. PRADAXA [Suspect]
     Dosage: 150 MG
     Route: 048

REACTIONS (6)
  - FEELING DRUNK [None]
  - ASTHENIA [None]
  - BRONCHITIS [None]
  - TOOTHACHE [None]
  - OROPHARYNGEAL PAIN [None]
  - EPISTAXIS [None]
